FAERS Safety Report 10662625 (Version 4)
Quarter: 2015Q1

REPORT INFORMATION
  Report Type: Spontaneous
  Country: US (occurrence: US)
  Receive Date: 20141218
  Receipt Date: 20150210
  Transmission Date: 20150720
  Serious: Yes (Other)
  Sender: FDA-Public Use
  Company Number: US-PFIZER INC-2014343671

PATIENT
  Sex: Female

DRUGS (3)
  1. LYRICA [Suspect]
     Active Substance: PREGABALIN
     Dosage: 100MG AT NIGHT AND 50MG IN THE MORNING
  2. LYRICA [Suspect]
     Active Substance: PREGABALIN
     Dosage: 50 MG, DAILY
  3. LYRICA [Suspect]
     Active Substance: PREGABALIN
     Dosage: 350 MG, DAILY

REACTIONS (8)
  - Drug withdrawal syndrome [Unknown]
  - Fatigue [Unknown]
  - Knee deformity [Unknown]
  - Diarrhoea [Unknown]
  - Pain [Unknown]
  - Blood electrolytes decreased [Unknown]
  - Dizziness [Unknown]
  - Asthenia [Unknown]
